FAERS Safety Report 8218001-4 (Version None)
Quarter: 2012Q1

REPORT INFORMATION
  Report Type: 
  Country: None (occurrence: None)
  Receive Date: 20120319
  Receipt Date: 20120313
  Transmission Date: 20120608
  Serious: No
  Sender: FDA-Public Use
  Company Number: US-PFIZER INC-2012059917

PATIENT
  Sex: Female
  Weight: 70.3 kg

DRUGS (1)
  1. LO/OVRAL-28 [Suspect]
     Indication: ORAL CONTRACEPTION
     Dosage: UNK, DAILY
     Route: 048
     Dates: start: 20100101

REACTIONS (2)
  - UNINTENDED PREGNANCY [None]
  - DRUG INEFFECTIVE [None]
